FAERS Safety Report 23246606 (Version 3)
Quarter: 2024Q1

REPORT INFORMATION
  Report Type: Spontaneous
  Country: US (occurrence: US)
  Receive Date: 20231130
  Receipt Date: 20240118
  Transmission Date: 20240410
  Serious: Yes (Other)
  Sender: FDA-Public Use
  Company Number: US-PFIZER INC-202300384653

PATIENT
  Age: 67 Year
  Sex: Female
  Weight: 58.06 kg

DRUGS (1)
  1. ESTRING [Suspect]
     Active Substance: ESTRADIOL
     Dosage: 7.5 UG

REACTIONS (3)
  - Device difficult to use [Unknown]
  - Complication of device removal [Unknown]
  - Vaginal haemorrhage [Unknown]
